FAERS Safety Report 8154987-4 (Version None)
Quarter: 2012Q1

REPORT INFORMATION
  Report Type: 
  Country: None (occurrence: None)
  Receive Date: 20120221
  Receipt Date: 20120217
  Transmission Date: 20120608
  Serious: Yes (Death, Life-Threatening)
  Sender: FDA-Public Use
  Company Number: PHHO2011US020661

PATIENT
  Sex: Female

DRUGS (5)
  1. BISOPROLOL FUMARATE [Concomitant]
     Indication: HYPERTENSION
     Dosage: 6.25 MG, QD
     Dates: start: 20060101
  2. HYDROCORTISONE [Concomitant]
  3. ENABLEX [Concomitant]
     Indication: MICTURITION URGENCY
     Dosage: 15 MG, QD
     Dates: start: 20080101
  4. EXELON [Suspect]
     Indication: DEMENTIA ALZHEIMER'S TYPE
     Dosage: UNK
     Route: 062
     Dates: start: 20110415, end: 20111005
  5. DILTIAZEM HCL [Concomitant]
     Indication: HYPERTENSION
     Dosage: 120 MG, QD
     Dates: start: 20060101

REACTIONS (1)
  - ACUTE PRERENAL FAILURE [None]
